FAERS Safety Report 6378634-7 (Version None)
Quarter: 2009Q3

REPORT INFORMATION
  Report Type: 
  Country: None (occurrence: None)
  Receive Date: 20090928
  Receipt Date: 20090922
  Transmission Date: 20100115
  Serious: Yes (Other)
  Sender: FDA-Public Use
  Company Number: US-AMGEN-QUU357523

PATIENT
  Sex: Female

DRUGS (7)
  1. EPOGEN [Suspect]
     Indication: DIALYSIS
     Route: 058
     Dates: start: 20080609
  2. RENAGEL [Concomitant]
     Dates: start: 20061126
  3. INH [Concomitant]
     Dates: start: 20080929, end: 20081203
  4. NEPHRO-VITE [Concomitant]
     Dates: start: 20080517
  5. FOLIC ACID [Concomitant]
     Dates: start: 20080517
  6. COREG [Concomitant]
     Dates: start: 20061126, end: 20080801
  7. MICARDIS [Concomitant]
     Dates: start: 20061101, end: 20080801

REACTIONS (1)
  - APLASIA PURE RED CELL [None]
